FAERS Safety Report 5984803-8 (Version None)
Quarter: 2008Q4

REPORT INFORMATION
  Report Type: 
  Country: None (occurrence: None)
  Receive Date: 20081202
  Receipt Date: 20081117
  Transmission Date: 20090506
  Serious: Yes (Other)
  Sender: FDA-Public Use
  Company Number: 230015M08ITA

PATIENT
  Age: 36 Year
  Sex: Female

DRUGS (5)
  1. REBIF [Suspect]
     Indication: MULTIPLE SCLEROSIS
     Dosage: 44 MCG, SUBCUTANEOUS
     Route: 058
     Dates: start: 20020411, end: 20080810
  2. NEURONTIN [Concomitant]
  3. RANIDIL (RANITIDINE HYDROCHLORIDE) [Concomitant]
  4. TACHIPIRINA (PARACETAMOL) [Concomitant]
  5. DIFMETRE (DIFMETRE) [Concomitant]

REACTIONS (1)
  - ABSCESS [None]
